FAERS Safety Report 25212030 (Version 1)
Quarter: 2025Q2

REPORT INFORMATION
  Report Type: Report from Study
  Country: CA (occurrence: CA)
  Receive Date: 20250418
  Receipt Date: 20250418
  Transmission Date: 20250717
  Serious: Yes (Other)
  Sender: TEVA
  Company Number: CA-TEVA-VS-3273836

PATIENT
  Age: 86 Year
  Sex: Female

DRUGS (1)
  1. ZOLEDRONIC ACID [Suspect]
     Active Substance: ZOLEDRONIC ACID
     Indication: Osteoporosis
     Dosage: DOSAGE FORM:SOLUTION INTRAVENOUS
     Route: 065

REACTIONS (3)
  - Renal impairment [Unknown]
  - Circumstance or information capable of leading to medication error [Unknown]
  - Cough [Unknown]
